FAERS Safety Report 16712280 (Version 1)
Quarter: 2019Q3

REPORT INFORMATION
  Report Type: Spontaneous
  Country: EG (occurrence: EG)
  Receive Date: 20190816
  Receipt Date: 20190816
  Transmission Date: 20191004
  Serious: Yes (Other)
  Sender: FDA-Public Use
  Company Number: EG-ELI_LILLY_AND_COMPANY-EG201908003778

PATIENT
  Sex: Male

DRUGS (1)
  1. ERBITUX [Suspect]
     Active Substance: CETUXIMAB
     Indication: COLON CANCER METASTATIC
     Dosage: UNK UNK, UNKNOWN
     Route: 065

REACTIONS (1)
  - Hypotension [Unknown]
